FAERS Safety Report 4999264-5 (Version None)
Quarter: 2006Q2

REPORT INFORMATION
  Report Type: 
  Country: None (occurrence: None)
  Receive Date: 20060510
  Receipt Date: 20060510
  Transmission Date: 20061013
  Serious: Yes (Hospitalization)
  Sender: FDA-Public Use
  Company Number: None

PATIENT
  Age: 56 Year
  Sex: Male
  Weight: 51.7101 kg

DRUGS (2)
  1. ZOSYN [Suspect]
     Dosage: 4.5 GM Q6 HR IV
     Route: 042
     Dates: start: 20060429, end: 20060501
  2. CIPROFLOXACIN [Suspect]
     Dosage: 400 MG Q12 HRS IV
     Route: 042
     Dates: start: 20060429, end: 20060501

REACTIONS (1)
  - DIARRHOEA [None]
